FAERS Safety Report 13782833 (Version 1)
Quarter: 2017Q3

REPORT INFORMATION
  Report Type: Spontaneous
  Country: NL (occurrence: NL)
  Receive Date: 20170724
  Receipt Date: 20170724
  Transmission Date: 20171127
  Serious: Yes (Hospitalization, Other)
  Sender: FDA-Public Use
  Company Number: NL-TEVA-790658ROM

PATIENT
  Age: 91 Year
  Sex: Female
  Weight: 50 kg

DRUGS (8)
  1. COLECALCIFEROL DRANK 25.000 IE/ML [Concomitant]
     Dosage: EXTRA INFO: 25000IE
     Route: 048
     Dates: start: 2016
  2. LETROZOL TABLET, OMHULD 2,5 MG [Concomitant]
     Dosage: 2.5 MILLIGRAM DAILY;
     Route: 048
     Dates: start: 2012
  3. RISPERIDON TABLET OMHULD 0,5 MG [Concomitant]
     Dosage: .5 MILLIGRAM DAILY;
     Route: 048
     Dates: start: 2016
  4. CHLORHEXIDINE MONDSPOELING 2 MG/ML [Concomitant]
     Dosage: 20 ML DAILY;
     Route: 003
     Dates: start: 2016, end: 2016
  5. PREDNISON TABLET 5MG [Suspect]
     Active Substance: PREDNISONE
     Indication: BRAIN OEDEMA
     Dosage: 5 MILLIGRAM DAILY;
     Route: 048
     Dates: start: 201607
  6. AMOXICILLINE DISPER TABLET 500 [Concomitant]
     Active Substance: AMOXICILLIN
     Dosage: 1500 MILLIGRAM DAILY;
     Route: 048
     Dates: start: 201609
  7. FOLIUMZUUR TABLET 5 MG [Concomitant]
     Active Substance: FOLIC ACID
     Dosage: 5 MILLIGRAM DAILY;
     Route: 048
     Dates: start: 201609
  8. XGEVA [Interacting]
     Active Substance: DENOSUMAB
     Indication: OSTEOPOROSIS PROPHYLAXIS
     Route: 030
     Dates: start: 20130107

REACTIONS (2)
  - Drug interaction [Unknown]
  - Osteonecrosis of jaw [Recovering/Resolving]

NARRATIVE: CASE EVENT DATE: 20160927
